FAERS Safety Report 15553135 (Version 2)
Quarter: 2018Q4

REPORT INFORMATION
  Report Type: Spontaneous
  Country: JP (occurrence: JP)
  Receive Date: 20181026
  Receipt Date: 20181123
  Transmission Date: 20190205
  Serious: No
  Sender: FDA-Public Use
  Company Number: JP-AMGEN-JPNSP2018149025

PATIENT
  Age: 85 Year
  Sex: Male

DRUGS (3)
  1. OXAROL [Concomitant]
     Active Substance: MAXACALCITOL
     Dosage: 7.5, 5.0, 7.5, 3X/WEEK
     Route: 010
     Dates: start: 20180426
  2. OXAROL [Concomitant]
     Active Substance: MAXACALCITOL
     Dosage: UNK
     Route: 010
     Dates: start: 20151219
  3. NESP [Suspect]
     Active Substance: DARBEPOETIN ALFA
     Indication: NEPHROGENIC ANAEMIA
     Dosage: 50 MUG, UNK
     Route: 010
     Dates: start: 20181016, end: 20181016

REACTIONS (1)
  - Vitreous floaters [Recovering/Resolving]

NARRATIVE: CASE EVENT DATE: 20181016
